FAERS Safety Report 7648011-7 (Version None)
Quarter: 2011Q3

REPORT INFORMATION
  Report Type: 
  Country: None (occurrence: None)
  Receive Date: 20110726
  Receipt Date: 20110715
  Transmission Date: 20111222
  Serious: Yes (Hospitalization, Other)
  Sender: FDA-Public Use
  Company Number: 017999

PATIENT
  Age: 68 Year
  Sex: Female

DRUGS (7)
  1. PEGAPTANIB SODIUM (PEGAPTANIB SODIUM) UNKNOWN [Suspect]
     Indication: DIABETIC RETINAL OEDEMA
     Dosage: 0.3 MG, INTRAVITREAL INJ. ONCE EVERY 6 WEEKS, INTRAOCULAR
     Route: 031
     Dates: start: 20110513
  2. ASPIRIN [Concomitant]
  3. ROSUVASTATIN [Concomitant]
  4. LANSOPRAZOLE [Concomitant]
  5. SAXAGLIPTIN (SAXAGLIPTIN) [Concomitant]
  6. GLYBURIDE [Concomitant]
  7. METFORMIN HCL [Concomitant]

REACTIONS (3)
  - CEREBRAL INFARCTION [None]
  - CEREBROVASCULAR ACCIDENT [None]
  - ANAEMIA [None]
